FAERS Safety Report 23763455 (Version 1)
Quarter: 2024Q2

REPORT INFORMATION
  Report Type: Spontaneous
  Country: IN (occurrence: IN)
  Receive Date: 20240419
  Receipt Date: 20240419
  Transmission Date: 20240716
  Serious: Yes (Life-Threatening, Hospitalization)
  Sender: FDA-Public Use
  Company Number: IN-GE HEALTHCARE-2024CSU003729

PATIENT
  Age: 45 Year
  Sex: Male

DRUGS (1)
  1. GADOLINIUM [Suspect]
     Active Substance: GADOLINIUM
     Indication: Magnetic resonance imaging abdominal
     Dosage: UNK, TOTAL
     Route: 065

REACTIONS (1)
  - Acute respiratory distress syndrome [Recovered/Resolved]
